FAERS Safety Report 11482950 (Version 1)
Quarter: 2015Q3

REPORT INFORMATION
  Report Type: Spontaneous
  Country: US (occurrence: US)
  Receive Date: 20150903
  Receipt Date: 20150903
  Transmission Date: 20151125
  Serious: No
  Sender: FDA-Public Use
  Company Number: US-ELI_LILLY_AND_COMPANY-US201204001932

PATIENT
  Age: 64 Year
  Sex: Female

DRUGS (5)
  1. CYMBALTA [Suspect]
     Active Substance: DULOXETINE HYDROCHLORIDE
     Dosage: 60 MG, BID
  2. CYMBALTA [Suspect]
     Active Substance: DULOXETINE HYDROCHLORIDE
     Indication: DEPRESSION
     Dosage: 60 MG, QD
  3. ANTIHYPERTENSIVES [Concomitant]
     Active Substance: UNSPECIFIED INGREDIENT
     Indication: HYPERTENSION
  4. PROZAC [Concomitant]
     Active Substance: FLUOXETINE HYDROCHLORIDE
     Indication: DEPRESSION
     Dosage: 10 MG, UNKNOWN
  5. CRESTOR [Concomitant]
     Active Substance: ROSUVASTATIN CALCIUM

REACTIONS (14)
  - Pruritus [Recovering/Resolving]
  - Hot flush [Recovering/Resolving]
  - Hyperhidrosis [Recovering/Resolving]
  - Drug effect incomplete [Recovered/Resolved]
  - Abnormal behaviour [Not Recovered/Not Resolved]
  - Oral mucosal eruption [Recovering/Resolving]
  - Drug withdrawal syndrome [Recovering/Resolving]
  - Anxiety [Not Recovered/Not Resolved]
  - Oral mucosal blistering [Recovering/Resolving]
  - Blister [Recovering/Resolving]
  - Paraesthesia [Recovering/Resolving]
  - Anger [Not Recovered/Not Resolved]
  - Herpes zoster [Unknown]
  - Urticaria [Recovering/Resolving]
